FAERS Safety Report 6185915-9 (Version None)
Quarter: 2009Q2

REPORT INFORMATION
  Report Type: 
  Country: None (occurrence: None)
  Receive Date: 20090507
  Receipt Date: 20090421
  Transmission Date: 20091009
  Serious: Yes (Hospitalization)
  Sender: FDA-Public Use
  Company Number: 2008-179132-NL

PATIENT
  Age: 39 Year
  Sex: Female
  Weight: 83.9 kg

DRUGS (3)
  1. NUVARING [Suspect]
     Indication: PREMATURE MENOPAUSE
     Dosage: 3 WEEKS PER MONTH
     Dates: start: 20070301, end: 20070901
  2. NORCO [Concomitant]
  3. IBUPROFEN [Concomitant]

REACTIONS (12)
  - ATELECTASIS [None]
  - DEEP VEIN THROMBOSIS [None]
  - DIZZINESS [None]
  - ELECTROCARDIOGRAM T WAVE ABNORMAL [None]
  - LEUKOCYTOSIS [None]
  - ORTHOPNOEA [None]
  - PERIPHERAL NERVE LESION [None]
  - PULMONARY EMBOLISM [None]
  - PULMONARY INFARCTION [None]
  - SINUS TACHYCARDIA [None]
  - UPPER LIMB FRACTURE [None]
  - VOMITING [None]
